FAERS Safety Report 12536098 (Version 1)
Quarter: 2016Q3

REPORT INFORMATION
  Report Type: Spontaneous
  Country: US (occurrence: US)
  Receive Date: 20160707
  Receipt Date: 20160707
  Transmission Date: 20161109
  Serious: Yes (Death, Congenital Anomaly)
  Sender: FDA-Public Use
  Company Number: US-RECORDATI RARE DISEASES-US-R13005-16-00161

PATIENT
  Sex: Male

DRUGS (1)
  1. METHAMPHETAMINE [Suspect]
     Active Substance: METHAMPHETAMINE
     Indication: PRODUCT USED FOR UNKNOWN INDICATION
     Route: 065

REACTIONS (5)
  - Neonatal respiratory failure [Fatal]
  - PHACES syndrome [Fatal]
  - Bronchopulmonary dysplasia [Fatal]
  - Foetal exposure during pregnancy [Fatal]
  - Pulmonary oedema neonatal [Fatal]
